FAERS Safety Report 13658709 (Version 1)
Quarter: 2017Q2

REPORT INFORMATION
  Report Type: Spontaneous
  Country: US (occurrence: US)
  Receive Date: 20170615
  Receipt Date: 20170615
  Transmission Date: 20170830
  Serious: Yes (Hospitalization)
  Sender: FDA-Public Use
  Company Number: None

PATIENT
  Age: 67 Year
  Sex: Male
  Weight: 72 kg

DRUGS (2)
  1. DEXAMETHASONE. [Concomitant]
     Active Substance: DEXAMETHASONE
  2. TEMOZOLOMIDE. [Suspect]
     Active Substance: TEMOZOLOMIDE
     Dates: end: 20170324

REACTIONS (9)
  - Loss of personal independence in daily activities [None]
  - Muscular weakness [None]
  - Parkinsonism [None]
  - Toxicity to various agents [None]
  - Aphasia [None]
  - Dysstasia [None]
  - Ataxia [None]
  - Myopathy [None]
  - Tremor [None]

NARRATIVE: CASE EVENT DATE: 20170603
